FAERS Safety Report 8608390 (Version 4)
Quarter: 2014Q1

REPORT INFORMATION
  Report Type: Spontaneous
  Country: US (occurrence: US)
  Receive Date: 20120611
  Receipt Date: 20140110
  Transmission Date: 20141002
  Serious: Yes (Disabling)
  Sender: FDA-Public Use
  Company Number: US-ASTRAZENECA-2012SE35465

PATIENT
  Age: 634 Month
  Sex: Female
  Weight: 74.4 kg

DRUGS (11)
  1. NEXIUM [Suspect]
     Indication: GASTROOESOPHAGEAL REFLUX DISEASE
     Route: 048
     Dates: end: 2011
  2. NEXIUM [Suspect]
     Indication: GASTROOESOPHAGEAL REFLUX DISEASE
     Route: 048
     Dates: start: 20100330
  3. RANITIDINE [Concomitant]
     Indication: GASTROOESOPHAGEAL REFLUX DISEASE
     Dosage: 2-150 MG AT NIGHT
  4. METHADONE [Concomitant]
     Dates: start: 20031103
  5. PAROXETINE [Concomitant]
     Dates: start: 20031103
  6. PROTONIX [Concomitant]
     Dates: start: 20031103
  7. TRAZODONE [Concomitant]
     Dates: start: 20050624
  8. DICYCLOMINE [Concomitant]
     Dates: start: 20050624
  9. LEVAQUIN [Concomitant]
     Dates: start: 20060331
  10. PAXIL [Concomitant]
     Dates: start: 20060613
  11. BUPROPION [Concomitant]
     Dates: start: 20061229

REACTIONS (8)
  - Uterine disorder [Unknown]
  - Nervous system disorder [Unknown]
  - Osteoporosis [Unknown]
  - Systemic lupus erythematosus [Unknown]
  - Foot fracture [Unknown]
  - Arthritis [Unknown]
  - Chronic obstructive pulmonary disease [Unknown]
  - Osteoarthritis [Unknown]
